FAERS Safety Report 9171389 (Version 2)
Quarter: 2013Q1

REPORT INFORMATION
  Report Type: Spontaneous
  Country: AU (occurrence: AU)
  Receive Date: 20130319
  Receipt Date: 20130319
  Transmission Date: 20140127
  Serious: Yes (Hospitalization)
  Sender: FDA-Public Use
  Company Number: AU-ASTRAZENECA-2013SE11440

PATIENT
  Age: 31 Year
  Sex: Female
  Weight: 87 kg

DRUGS (2)
  1. MARCAINE [Suspect]
     Indication: NERVE BLOCK
     Route: 037
     Dates: start: 20130210, end: 20130210
  2. MORPHINE [Suspect]
     Indication: NERVE BLOCK
     Dates: start: 20130210, end: 20130210

REACTIONS (2)
  - Drug ineffective [Unknown]
  - Perineal pain [Recovered/Resolved]
